FAERS Safety Report 8566686 (Version 5)
Quarter: 2013Q1

REPORT INFORMATION
  Report Type: Spontaneous
  Country: US (occurrence: US)
  Receive Date: 20120517
  Receipt Date: 20130301
  Transmission Date: 20140127
  Serious: Yes (Hospitalization)
  Sender: FDA-Public Use
  Company Number: US-B.I. PHARMACEUTICALS,INC./RIDGEFIELD-2012-BP-10681BP

PATIENT
  Age: 71 Year
  Sex: Female
  Weight: 78.47 kg

DRUGS (36)
  1. PRADAXA [Suspect]
     Indication: ATRIAL FIBRILLATION
     Dosage: 300 MG
     Route: 048
     Dates: start: 20110802, end: 20110808
  2. PRADAXA [Suspect]
     Dosage: 150 MG
     Route: 048
     Dates: start: 20110827, end: 20110830
  3. CO-ENZYME Q10 [Concomitant]
     Dosage: 100 MG
  4. MOBIC [Concomitant]
     Dosage: 15 MG
     Route: 048
  5. METOPROLOL [Concomitant]
     Dosage: 100 MG
     Route: 048
  6. TOPROL XL [Concomitant]
     Dates: start: 1997
  7. ZOCOR [Concomitant]
     Dosage: 20 MG
     Route: 048
     Dates: start: 1997
  8. VITAMIN C [Concomitant]
     Dosage: 400 MG
  9. VITAMIN D3 [Concomitant]
     Dosage: 4000 U
  10. VITAMIN B12 [Concomitant]
     Dosage: 1000 MCG
  11. VITAMIN B12 [Concomitant]
  12. EFFIENT [Concomitant]
     Dosage: 10 MG
     Dates: start: 201104
  13. METFORMIN [Concomitant]
     Dosage: 2000 MG
     Dates: start: 1995
  14. GLYBURIDE [Concomitant]
     Dosage: 5 MG
     Dates: start: 1995
  15. TRAMADOL [Concomitant]
     Dates: start: 201012, end: 201111
  16. MAGNESIUM OXIDE [Concomitant]
     Dosage: 500 MG
  17. MAGNESIUM OXIDE [Concomitant]
  18. LASIX [Concomitant]
     Dosage: 20 MG
     Dates: start: 201107
  19. LASIX [Concomitant]
  20. POTASSIUM CHLORIDE [Concomitant]
     Dosage: 10 MEQ
     Route: 048
     Dates: start: 201108, end: 201202
  21. POTASSIUM CHLORIDE [Concomitant]
  22. TYLENOL [Concomitant]
  23. TYLENOL [Concomitant]
  24. ZITHROMAX [Concomitant]
     Dosage: 500 MG
     Route: 048
  25. ZITHROMAX [Concomitant]
  26. PROTONIX [Concomitant]
     Dosage: 40 MG
     Route: 048
  27. PROTONIX [Concomitant]
  28. MULTAQ [Concomitant]
     Dosage: 800 MG
     Route: 048
  29. MULTAQ [Concomitant]
  30. ASPIRIN [Concomitant]
     Dosage: 81 MG
     Route: 048
  31. ASPIRIN [Concomitant]
  32. NEXIUM [Concomitant]
     Dates: start: 201109
  33. LEVOFLOXACIN [Concomitant]
  34. SKELAKTIN [Concomitant]
  35. FOSINOPRIL [Concomitant]
     Dosage: 20 MG
     Route: 048
  36. COLACE [Concomitant]

REACTIONS (6)
  - Subdural haematoma [Not Recovered/Not Resolved]
  - Haemorrhage [Unknown]
  - Fall [Unknown]
  - Facial bones fracture [Recovered/Resolved]
  - Facial bones fracture [Recovered/Resolved]
  - Gastrointestinal haemorrhage [Recovered/Resolved]
